FAERS Safety Report 4548144-8 (Version None)
Quarter: 2004Q4

REPORT INFORMATION
  Report Type: 
  Country: None (occurrence: None)
  Receive Date: 20041220
  Receipt Date: 20041101
  Transmission Date: 20050328
  Serious: Yes (Other)
  Sender: FDA-Public Use
  Company Number: 2004093993

PATIENT
  Sex: Male

DRUGS (2)
  1. VFEND [Suspect]
     Indication: ILL-DEFINED DISORDER
  2. DIFLUCAN [Suspect]
     Indication: ILL-DEFINED DISORDER

REACTIONS (6)
  - DERMATITIS EXFOLIATIVE [None]
  - DRUG INTERACTION [None]
  - GRAFT VERSUS HOST DISEASE [None]
  - INTENTIONAL MISUSE [None]
  - RASH [None]
  - SKIN REACTION [None]
